FAERS Safety Report 20665353 (Version 1)
Quarter: 2022Q2

REPORT INFORMATION
  Report Type: Spontaneous
  Country: JP (occurrence: JP)
  Receive Date: 20220401
  Receipt Date: 20220401
  Transmission Date: 20220721
  Serious: No
  Sender: FDA-Public Use
  Company Number: JP-MSD-2203JPN003375J

PATIENT
  Age: 76 Year
  Sex: Male

DRUGS (3)
  1. MOLNUPIRAVIR [Suspect]
     Active Substance: MOLNUPIRAVIR
     Indication: COVID-19 treatment
     Dosage: 200 MILLIGRAM, ONCE
     Route: 048
     Dates: start: 20220209, end: 20220209
  2. MOLNUPIRAVIR [Suspect]
     Active Substance: MOLNUPIRAVIR
     Dosage: 200 MILLIGRAM, BID
     Route: 048
     Dates: start: 20220210, end: 20220210
  3. MOLNUPIRAVIR [Suspect]
     Active Substance: MOLNUPIRAVIR
     Dosage: 4 DOSAGE FORM, BID
     Route: 048
     Dates: start: 20220211, end: 20220215

REACTIONS (5)
  - Pruritus [Unknown]
  - Urticaria [Unknown]
  - Dizziness [Recovered/Resolved]
  - Underdose [Unknown]
  - Product use issue [Unknown]

NARRATIVE: CASE EVENT DATE: 20220201
